FAERS Safety Report 25266848 (Version 1)
Quarter: 2025Q2

REPORT INFORMATION
  Report Type: Spontaneous
  Country: IL (occurrence: IL)
  Receive Date: 20250505
  Receipt Date: 20250505
  Transmission Date: 20250717
  Serious: Yes (Other)
  Sender: ADAPTIS PHARMA INDIA
  Company Number: IL-Adaptis Pharma Private Limited-2176147

PATIENT
  Age: 32 Year
  Sex: Female

DRUGS (5)
  1. LEVETIRACETAM [Suspect]
     Active Substance: LEVETIRACETAM
     Indication: Generalised tonic-clonic seizure
  2. VALPROIC ACID [Concomitant]
     Active Substance: VALPROIC ACID
  3. LACOSAMIDE [Concomitant]
     Active Substance: LACOSAMIDE
  4. OXCARBAZEPINE [Concomitant]
     Active Substance: OXCARBAZEPINE
  5. CARBAMAZEPINE [Concomitant]
     Active Substance: CARBAMAZEPINE

REACTIONS (1)
  - Seizure [Recovering/Resolving]
